FAERS Safety Report 7289227-1 (Version None)
Quarter: 2011Q1

REPORT INFORMATION
  Report Type: 
  Country: None (occurrence: None)
  Receive Date: 20110211
  Receipt Date: 20100218
  Transmission Date: 20110831
  Serious: Yes (Other)
  Sender: FDA-Public Use
  Company Number: NL-NOVEN-10NL001755

PATIENT
  Age: 28 Year
  Sex: Female

DRUGS (1)
  1. PAROXETINE HCL [Suspect]
     Indication: DEPRESSION
     Dosage: 20 MG, UNKNOWN
     Route: 048

REACTIONS (5)
  - INTENTIONAL SELF-INJURY [None]
  - SUICIDAL IDEATION [None]
  - RESTLESSNESS [None]
  - IMPULSIVE BEHAVIOUR [None]
  - AGGRESSION [None]
